FAERS Safety Report 20054699 (Version 2)
Quarter: 2022Q2

REPORT INFORMATION
  Report Type: Report from Study
  Country: US (occurrence: US)
  Receive Date: 20211110
  Receipt Date: 20220509
  Transmission Date: 20220721
  Serious: No
  Sender: FDA-Public Use
  Company Number: US-NOVARTISTESTPH-NVSC2021US257555

PATIENT
  Sex: Female

DRUGS (1)
  1. COSENTYX [Suspect]
     Active Substance: SECUKINUMAB
     Indication: Spinal osteoarthritis
     Route: 058

REACTIONS (4)
  - Oral candidiasis [Unknown]
  - Swelling [Unknown]
  - Product use in unapproved indication [Unknown]
  - Injection site reaction [Unknown]
